FAERS Safety Report 13897884 (Version 1)
Quarter: 2017Q3

REPORT INFORMATION
  Report Type: Spontaneous
  Country: US (occurrence: None)
  Receive Date: 20170817
  Receipt Date: 20170817
  Transmission Date: 20171127
  Serious: Yes (Hospitalization)
  Sender: FDA-Public Use
  Company Number: None

PATIENT
  Age: 56 Year
  Sex: Female

DRUGS (1)
  1. VOTRIENT [Suspect]
     Active Substance: PAZOPANIB HYDROCHLORIDE
     Indication: RENAL CELL CARCINOMA
     Route: 048
     Dates: start: 201609

REACTIONS (7)
  - Fall [None]
  - Liver function test abnormal [None]
  - Condition aggravated [None]
  - Blood pressure increased [None]
  - Thyroid function test abnormal [None]
  - Balance disorder [None]
  - Cognitive disorder [None]

NARRATIVE: CASE EVENT DATE: 20161226
